FAERS Safety Report 19396107 (Version 2)
Quarter: 2021Q2

REPORT INFORMATION
  Report Type: Other
  Country: US (occurrence: US)
  Receive Date: 20210610
  Receipt Date: 20210614
  Transmission Date: 20210717
  Serious: Yes (Other)
  Sender: FDA-Public Use
  Company Number: US-ROCHE-2841943

PATIENT
  Sex: Male

DRUGS (59)
  1. RIBOFLAVIN [Concomitant]
     Active Substance: RIBOFLAVIN
  2. THIAMINE. [Concomitant]
     Active Substance: THIAMINE
  3. CARVEDILOL. [Concomitant]
     Active Substance: CARVEDILOL
  4. LEUCOVORIN. [Concomitant]
     Active Substance: LEUCOVORIN
  5. THIAMINE HYDROCHLORIDE. [Concomitant]
     Active Substance: THIAMINE HYDROCHLORIDE
  6. METRONIDAZOLE. [Concomitant]
     Active Substance: METRONIDAZOLE
  7. CLONAZEPAM. [Concomitant]
     Active Substance: CLONAZEPAM
     Dosage: VIA G?TUBE
  8. BENADRYL [Concomitant]
     Active Substance: DIPHENHYDRAMINE HYDROCHLORIDE
     Dosage: AT BED TIME
  9. ATIVAN [Concomitant]
     Active Substance: LORAZEPAM
  10. ALDACTONE [Concomitant]
     Active Substance: SPIRONOLACTONE
  11. FRUCTOSE [Concomitant]
     Active Substance: FRUCTOSE
  12. DEXTROMETHORPHAN [Concomitant]
     Active Substance: DEXTROMETHORPHAN
  13. CYANOCOBALAMIN. [Concomitant]
     Active Substance: CYANOCOBALAMIN
     Route: 048
  14. MILRINONE [Concomitant]
     Active Substance: MILRINONE
     Dosage: 0.5 MICROG PER KG PER MIN
  15. PSYLLIUM [Concomitant]
     Active Substance: PLANTAGO SEED
     Indication: CONSTIPATION
  16. CELLCEPT [Suspect]
     Active Substance: MYCOPHENOLATE MOFETIL\MYCOPHENOLATE MOFETIL HYDROCHLORIDE
     Indication: PROPHYLAXIS AGAINST TRANSPLANT REJECTION
     Route: 065
  17. BIOTIN [Concomitant]
     Active Substance: BIOTIN
  18. NUTROPIN AQ [Concomitant]
     Active Substance: SOMATROPIN
     Dosage: 10 MG/2 ML; PATIENT GETS 1.7 MG SUBCUTANEOUS, ONCE A DAY BEFORE BEDTIME QHS
     Route: 058
  19. LISINOPRIL. [Concomitant]
     Active Substance: LISINOPRIL
  20. COENZYME Q10 [Concomitant]
     Active Substance: DIETARY SUPPLEMENT\UBIDECARENONE
  21. DEXTROMETHORPHAN [Concomitant]
     Active Substance: DEXTROMETHORPHAN
     Dosage: AS NEEDED VIA G?TUBE
  22. LORATADINE. [Concomitant]
     Active Substance: LORATADINE
     Dosage: VIA G?TUBE
  23. AMLODIPINE [Concomitant]
     Active Substance: AMLODIPINE BESYLATE
  24. CHLOROTHIAZIDE. [Concomitant]
     Active Substance: CHLOROTHIAZIDE
  25. THIAMINE. [Concomitant]
     Active Substance: THIAMINE
  26. KONSYL [Concomitant]
     Active Substance: PSYLLIUM HUSK
  27. DIAZEPAM. [Concomitant]
     Active Substance: DIAZEPAM
     Indication: SEIZURE
  28. DIGOXIN. [Concomitant]
     Active Substance: DIGOXIN
  29. BIOTIN [Concomitant]
     Active Substance: BIOTIN
  30. LANOXIN [Concomitant]
     Active Substance: DIGOXIN
  31. BACLOFEN. [Concomitant]
     Active Substance: BACLOFEN
     Dosage: QPM VIA G?TUBE
  32. ZOFRAN [Concomitant]
     Active Substance: ONDANSETRON HYDROCHLORIDE
  33. MIRALAX [Concomitant]
     Active Substance: POLYETHYLENE GLYCOL 3350
     Dosage: BEFORE BEDTIME AS NEEDED
  34. ROBINUL [Concomitant]
     Active Substance: GLYCOPYRROLATE
  35. PREDNISOLONE. [Suspect]
     Active Substance: PREDNISOLONE
     Indication: PROPHYLAXIS AGAINST TRANSPLANT REJECTION
     Route: 065
  36. RIBOFLAVIN [Concomitant]
     Active Substance: RIBOFLAVIN
  37. CARNITINE [Concomitant]
     Active Substance: CARNITINE
  38. CARNITINE [Concomitant]
     Active Substance: CARNITINE
  39. CARNITINE [Concomitant]
     Active Substance: CARNITINE
  40. MELATONIN [Concomitant]
     Active Substance: MELATONIN
     Dosage: BEFORE BED
  41. DEXTROMETHORPHAN [Concomitant]
     Active Substance: DEXTROMETHORPHAN
  42. ASPIRIN 81 [Concomitant]
     Active Substance: ASPIRIN
  43. CALCITRIOL. [Concomitant]
     Active Substance: CALCITRIOL
  44. FUROSEMIDE. [Concomitant]
     Active Substance: FUROSEMIDE
  45. LACTOBACILLUS RHAMNOSUS [Concomitant]
     Active Substance: LACTOBACILLUS RHAMNOSUS
  46. OMEGA?3 FISH OIL [Concomitant]
     Active Substance: FISH OIL\OMEGA-3 FATTY ACIDS
  47. SIROLIMUS. [Concomitant]
     Active Substance: SIROLIMUS
  48. UBIQUINONE [Concomitant]
     Active Substance: DIETARY SUPPLEMENT\UBIDECARENONE
  49. TACROLIMUS. [Suspect]
     Active Substance: TACROLIMUS
     Indication: PROPHYLAXIS AGAINST TRANSPLANT REJECTION
     Route: 065
  50. FLUOXETINE [Concomitant]
     Active Substance: FLUOXETINE HYDROCHLORIDE
  51. MELATONIN [Concomitant]
     Active Substance: MELATONIN
     Dosage: 5 ML OF A 2.5MG/10 ML SOLUTION, BEFORE BEDTIME
  52. CLONAZEPAM. [Concomitant]
     Active Substance: CLONAZEPAM
  53. SERTRALINE [Concomitant]
     Active Substance: SERTRALINE HYDROCHLORIDE
  54. MORPHINE [Concomitant]
     Active Substance: MORPHINE
  55. TACROLIMUS. [Suspect]
     Active Substance: TACROLIMUS
     Route: 065
  56. BACLOFEN. [Concomitant]
     Active Substance: BACLOFEN
  57. ATOVAQUONE. [Concomitant]
     Active Substance: ATOVAQUONE
     Dosage: 750 MG/5 ML 1200 MG QD VIA G?TUBE
  58. TEGRETOL [Concomitant]
     Active Substance: CARBAMAZEPINE
  59. ASCORBIC ACID. [Concomitant]
     Active Substance: ASCORBIC ACID

REACTIONS (2)
  - Chronic kidney disease [Unknown]
  - Pneumonia aspiration [Unknown]
